FAERS Safety Report 9292097 (Version 1)
Quarter: 2013Q2

REPORT INFORMATION
  Report Type: Spontaneous
  Country: TR (occurrence: TR)
  Receive Date: 20130516
  Receipt Date: 20130516
  Transmission Date: 20140414
  Serious: Yes (Hospitalization, Other)
  Sender: FDA-Public Use
  Company Number: TR-PAR PHARMACEUTICAL, INC-2013SCPR005912

PATIENT
  Sex: 0

DRUGS (3)
  1. FLUOXETINE [Suspect]
     Indication: RESTLESS LEGS SYNDROME
     Dosage: 20 MG, QD
     Route: 065
  2. ERGOTAMINE [Interacting]
     Indication: MIGRAINE
     Dosage: 1.5 MG, QD
     Route: 065
  3. CLARITHROMYCIN [Interacting]
     Indication: LOWER RESPIRATORY TRACT INFECTION
     Dosage: 1000 MG, QD
     Route: 065

REACTIONS (3)
  - Stress cardiomyopathy [Recovered/Resolved]
  - Ergot poisoning [Recovered/Resolved]
  - Drug interaction [Recovered/Resolved]
